FAERS Safety Report 8082880-4 (Version None)
Quarter: 2012Q1

REPORT INFORMATION
  Report Type: 
  Country: None (occurrence: None)
  Receive Date: 20120127
  Receipt Date: 20110120
  Transmission Date: 20120608
  Serious: No
  Sender: FDA-Public Use
  Company Number: US-ABBOTT-11P-163-0700574-00

PATIENT
  Sex: Female
  Weight: 74.91 kg

DRUGS (4)
  1. MELOXICAM [Concomitant]
     Indication: PRODUCT USED FOR UNKNOWN INDICATION
  2. HUMIRA [Suspect]
  3. HUMIRA [Suspect]
     Indication: PSORIATIC ARTHROPATHY
     Route: 058
     Dates: start: 20090101
  4. PREVACID [Concomitant]
     Indication: PRODUCT USED FOR UNKNOWN INDICATION

REACTIONS (11)
  - PHARYNGITIS [None]
  - THYROID CYST [None]
  - ARTHRITIS [None]
  - RASH [None]
  - RASH GENERALISED [None]
  - GUTTATE PSORIASIS [None]
  - RASH PRURITIC [None]
  - PAIN [None]
  - BACK PAIN [None]
  - INFLAMMATION [None]
  - NERVE COMPRESSION [None]
